FAERS Safety Report 23028580 (Version 6)
Quarter: 2024Q3

REPORT INFORMATION
  Report Type: Spontaneous
  Country: US (occurrence: US)
  Receive Date: 20231004
  Receipt Date: 20240924
  Transmission Date: 20241017
  Serious: No
  Sender: PFIZER
  Company Number: US-PFIZER INC-PV202300162734

PATIENT
  Age: 67 Year
  Sex: Female

DRUGS (3)
  1. XELJANZ XR [Suspect]
     Active Substance: TOFACITINIB CITRATE
     Indication: Osteoarthritis
     Dosage: 11 MG
  2. DICLOFENAC [Concomitant]
     Active Substance: DICLOFENAC
     Dosage: EVERY ONCE IN A WHILE IN THE KNEES
  3. DICLOFENAC [Concomitant]
     Active Substance: DICLOFENAC
     Dosage: 2-3 TIMES A MONTH

REACTIONS (16)
  - Pruritus [Unknown]
  - Musculoskeletal stiffness [Unknown]
  - Arthritis [Unknown]
  - Sensitivity to weather change [Unknown]
  - Taste disorder [Unknown]
  - Inflammation [Recovered/Resolved]
  - Condition aggravated [Unknown]
  - Abnormal dreams [Unknown]
  - Erythema [Recovered/Resolved]
  - Paraesthesia [Unknown]
  - Joint swelling [Unknown]
  - Nocturia [Unknown]
  - Rash erythematous [Unknown]
  - Psoriasis [Unknown]
  - Off label use [Unknown]
  - Drug effective for unapproved indication [Unknown]

NARRATIVE: CASE EVENT DATE: 20230601
